FAERS Safety Report 10021008 (Version 2)
Quarter: 2014Q1

REPORT INFORMATION
  Report Type: Spontaneous
  Country: HU (occurrence: HU)
  Receive Date: 20140319
  Receipt Date: 20140327
  Transmission Date: 20141002
  Serious: Yes (Hospitalization)
  Sender: FDA-Public Use
  Company Number: HU-ROCHE-1367500

PATIENT
  Sex: Male

DRUGS (4)
  1. ROACTEMRA [Suspect]
     Indication: RHEUMATOID ARTHRITIS
     Dosage: LAST DOSE OF TOCILIZUMAB 10/MAR/2014
     Route: 065
  2. MEDROL [Concomitant]
     Route: 065
  3. ALGOPYRIN [Concomitant]
  4. TRAMADOL [Concomitant]

REACTIONS (1)
  - Central nervous system lesion [Unknown]
